FAERS Safety Report 9700931 (Version 2)
Quarter: 2014Q1

REPORT INFORMATION
  Report Type: Spontaneous
  Country: US (occurrence: US)
  Receive Date: 20131121
  Receipt Date: 20140103
  Transmission Date: 20141002
  Serious: Yes (Hospitalization)
  Sender: FDA-Public Use
  Company Number: US-ASTELLAS-2013US012016

PATIENT
  Age: 60 Year
  Sex: Male

DRUGS (7)
  1. XTANDI [Suspect]
     Indication: PROSTATE CANCER
     Dosage: UNK
     Route: 048
  2. AMLODIPINE [Concomitant]
     Indication: PRODUCT USED FOR UNKNOWN INDICATION
     Dosage: 10 MG, UID/QD
     Route: 065
  3. HYDROMORPHONE [Concomitant]
     Indication: PRODUCT USED FOR UNKNOWN INDICATION
     Dosage: 30 MG, PRN
     Route: 065
  4. PREDNISONE [Concomitant]
     Indication: PRODUCT USED FOR UNKNOWN INDICATION
     Dosage: 5 MG, UID/QD
     Route: 065
  5. VITAMIN D                          /00107901/ [Concomitant]
     Indication: PRODUCT USED FOR UNKNOWN INDICATION
     Dosage: UNK
     Route: 065
  6. LUPRON [Concomitant]
     Indication: PRODUCT USED FOR UNKNOWN INDICATION
     Dosage: UNK
     Route: 030
  7. ZOMETA [Concomitant]
     Indication: PRODUCT USED FOR UNKNOWN INDICATION
     Dosage: UNK
     Route: 042

REACTIONS (1)
  - Pain in extremity [Unknown]
